FAERS Safety Report 20995496 (Version 1)
Quarter: 2022Q2

REPORT INFORMATION
  Report Type: Spontaneous
  Country: CN (occurrence: CN)
  Receive Date: 20220622
  Receipt Date: 20220622
  Transmission Date: 20220720
  Serious: Yes (Other)
  Sender: FDA-Public Use
  Company Number: CN-PFIZER INC-PV202200003953

PATIENT
  Age: 46 Year
  Sex: Female

DRUGS (27)
  1. FLUCONAZOLE [Suspect]
     Active Substance: FLUCONAZOLE
     Indication: Systemic lupus erythematosus
     Dosage: 0.4 G, DAILY
     Route: 042
     Dates: start: 20200816
  2. FLUCONAZOLE [Suspect]
     Active Substance: FLUCONAZOLE
     Dosage: 0.4 G, DAILY
     Route: 042
  3. ITRACONAZOLE [Suspect]
     Active Substance: ITRACONAZOLE
     Indication: Fungal infection
     Dosage: 200 MG, DAILY
     Route: 048
  4. METHYLPREDNISOLONE [Suspect]
     Active Substance: METHYLPREDNISOLONE
     Indication: Systemic lupus erythematosus
     Dosage: 40 MG/DAY
     Route: 042
  5. METHYLPREDNISOLONE [Suspect]
     Active Substance: METHYLPREDNISOLONE
     Dosage: 40 MG/DAY
     Route: 042
     Dates: start: 20200810, end: 20200826
  6. METHYLPREDNISOLONE [Suspect]
     Active Substance: METHYLPREDNISOLONE
     Dosage: 40 MG, 2X/DAY
     Route: 042
     Dates: start: 20200827
  7. PIPERACILLIN AND TAZOBACTAM [Suspect]
     Active Substance: PIPERACILLIN SODIUM\TAZOBACTAM SODIUM
     Dosage: 4.5 G, 2X/DAY
     Route: 042
     Dates: start: 20200807
  8. CEFOPERAZONE SODIUM\SULBACTAM SODIUM [Suspect]
     Active Substance: CEFOPERAZONE SODIUM\SULBACTAM SODIUM
     Indication: Bacteraemia
     Dosage: 3.0 G, 2X/DAY
     Route: 065
     Dates: start: 20200811, end: 20200820
  9. CEFOPERAZONE SODIUM\SULBACTAM SODIUM [Suspect]
     Active Substance: CEFOPERAZONE SODIUM\SULBACTAM SODIUM
     Dosage: 1.5 G, 3X/DAY, FOR 4 DAYS
     Route: 065
     Dates: start: 20200821
  10. CYCLOPHOSPHAMIDE [Suspect]
     Active Substance: CYCLOPHOSPHAMIDE
     Indication: Systemic lupus erythematosus
     Dosage: 0.6 G, DAILY
     Route: 042
  11. PREDNISONE [Suspect]
     Active Substance: PREDNISONE
     Indication: Systemic lupus erythematosus
     Dosage: 45 MG, DAILY
     Route: 048
  12. PREDNISONE [Suspect]
     Active Substance: PREDNISONE
     Dosage: 7.5 MG, DAILY
     Route: 048
     Dates: start: 2004
  13. PREDNISONE [Suspect]
     Active Substance: PREDNISONE
     Dosage: 17.5 MG, DAILY
     Route: 048
  14. PREDNISONE [Suspect]
     Active Substance: PREDNISONE
     Dosage: 40 MG, DAILY
     Route: 048
     Dates: start: 20200908
  15. HYDROXYCHLOROQUINE [Suspect]
     Active Substance: HYDROXYCHLOROQUINE
     Indication: Systemic lupus erythematosus
     Dosage: 400 MG, DAILY
     Route: 065
  16. HYDROXYCHLOROQUINE [Suspect]
     Active Substance: HYDROXYCHLOROQUINE
     Dosage: 300 MG/DAY
     Route: 048
     Dates: start: 2004
  17. HYDROXYCHLOROQUINE [Suspect]
     Active Substance: HYDROXYCHLOROQUINE
     Dosage: 300 MG/DAY
     Route: 048
     Dates: start: 20200908
  18. IMIPENEM AND CILASTATIN [Suspect]
     Active Substance: CILASTATIN SODIUM\IMIPENEM
     Indication: Systemic lupus erythematosus
     Dosage: 3 G, DAILY
     Route: 042
     Dates: start: 20200823
  19. IMIPENEM AND CILASTATIN [Suspect]
     Active Substance: CILASTATIN SODIUM\IMIPENEM
     Dosage: 1 G, 3X/DAY
     Route: 042
  20. COLCHICINE [Suspect]
     Active Substance: COLCHICINE
     Indication: Systemic lupus erythematosus
     Dosage: 0.5 MG, DAILY
     Route: 048
     Dates: start: 20200816
  21. COLCHICINE [Suspect]
     Active Substance: COLCHICINE
     Indication: Gout
  22. GANCICLOVIR [Suspect]
     Active Substance: GANCICLOVIR
     Indication: Systemic lupus erythematosus
     Dosage: 0.3 G, 2X/DAY
     Route: 042
     Dates: start: 20200821
  23. HUMAN IMMUNOGLOBULIN G [Suspect]
     Active Substance: HUMAN IMMUNOGLOBULIN G
     Indication: Systemic lupus erythematosus
     Dosage: 20 G, DAILY
     Route: 065
     Dates: start: 20200821
  24. VANCOMYCIN [Suspect]
     Active Substance: VANCOMYCIN
     Indication: Systemic lupus erythematosus
     Dosage: 1 G, DAILY
     Route: 042
     Dates: start: 20200829
  25. DEXAMETHASONE [Suspect]
     Active Substance: DEXAMETHASONE
     Indication: Systemic lupus erythematosus
     Dosage: 5 MG, DAILY
     Route: 065
     Dates: start: 20200828
  26. ACYCLOVIR SODIUM [Suspect]
     Active Substance: ACYCLOVIR SODIUM
     Indication: Systemic lupus erythematosus
     Dosage: UNK
     Route: 065
  27. ACYCLOVIR SODIUM [Suspect]
     Active Substance: ACYCLOVIR SODIUM
     Indication: Epstein-Barr virus infection

REACTIONS (2)
  - Drug ineffective [Unknown]
  - Off label use [Unknown]
